FAERS Safety Report 6051711-6 (Version None)
Quarter: 2009Q1

REPORT INFORMATION
  Report Type: 
  Country: None (occurrence: None)
  Receive Date: 20090126
  Receipt Date: 20090114
  Transmission Date: 20090719
  Serious: Yes (Other)
  Sender: FDA-Public Use
  Company Number: US-ROCHE-608283

PATIENT
  Age: 85 Year
  Sex: Female

DRUGS (2)
  1. BONIVA [Suspect]
     Indication: OSTEOPOROSIS
     Route: 065
     Dates: end: 20080101
  2. BONIVA [Suspect]
     Route: 065
     Dates: start: 20080901

REACTIONS (5)
  - ARTHRALGIA [None]
  - DYSPEPSIA [None]
  - FALL [None]
  - HIP FRACTURE [None]
  - INTERVERTEBRAL DISC PROTRUSION [None]
